FAERS Safety Report 5154474-1 (Version None)
Quarter: 2006Q4

REPORT INFORMATION
  Report Type: 
  Country: None (occurrence: None)
  Receive Date: 20061120
  Receipt Date: 20061018
  Transmission Date: 20070319
  Serious: Yes (Death)
  Sender: FDA-Public Use
  Company Number: CA-ABBOTT-06P-028-0347532-00

PATIENT
  Sex: Female
  Weight: 59.02 kg

DRUGS (33)
  1. HUMIRA [Suspect]
     Indication: RHEUMATOID ARTHRITIS
     Route: 058
     Dates: start: 20060111, end: 20060921
  2. METHOTREXATE [Concomitant]
     Indication: DRUG USE FOR UNKNOWN INDICATION
     Route: 050
  3. CELECOXIB [Concomitant]
     Indication: DRUG USE FOR UNKNOWN INDICATION
     Route: 048
  4. PREDNISONE TAB [Concomitant]
     Indication: DRUG USE FOR UNKNOWN INDICATION
     Route: 048
  5. CO-DIOVAN [Concomitant]
     Indication: DRUG USE FOR UNKNOWN INDICATION
     Route: 048
  6. TRIAMTERENE [Concomitant]
     Indication: DRUG USE FOR UNKNOWN INDICATION
     Route: 048
  7. CLONIDINE [Concomitant]
     Indication: DRUG USE FOR UNKNOWN INDICATION
     Route: 048
  8. PROGESTERONE [Concomitant]
     Indication: DRUG USE FOR UNKNOWN INDICATION
     Route: 048
  9. ESTROGENS CONJUGATED [Concomitant]
     Indication: DRUG USE FOR UNKNOWN INDICATION
     Route: 048
  10. ZOPICLONE [Concomitant]
     Indication: DRUG USE FOR UNKNOWN INDICATION
  11. HYDROMORPHONE HYDROCHLORIDE [Concomitant]
     Indication: DRUG USE FOR UNKNOWN INDICATION
     Route: 048
  12. OMEPRAZOLE [Concomitant]
     Indication: DRUG USE FOR UNKNOWN INDICATION
     Route: 048
  13. ACETYLSALICYLIC ACID SRT [Concomitant]
     Indication: DRUG USE FOR UNKNOWN INDICATION
     Route: 048
  14. FOLIC ACID [Concomitant]
     Indication: DRUG USE FOR UNKNOWN INDICATION
     Route: 048
  15. ACETAMINOPHEN [Concomitant]
     Indication: DRUG USE FOR UNKNOWN INDICATION
     Route: 048
  16. TRAVATAN [Concomitant]
     Indication: DRUG USE FOR UNKNOWN INDICATION
     Route: 047
  17. SYSTANE [Concomitant]
     Indication: DRUG USE FOR UNKNOWN INDICATION
     Route: 047
  18. GENTAL [Concomitant]
     Indication: DRUG USE FOR UNKNOWN INDICATION
  19. OXYCODONE HCL [Concomitant]
     Indication: DRUG USE FOR UNKNOWN INDICATION
     Route: 048
  20. MELOXICAM [Concomitant]
     Indication: DRUG USE FOR UNKNOWN INDICATION
     Route: 048
  21. CYCLOBENZAPRINE HCL [Concomitant]
     Indication: DRUG USE FOR UNKNOWN INDICATION
     Route: 048
  22. ESSENTIAL ENZYMES [Concomitant]
     Indication: DRUG USE FOR UNKNOWN INDICATION
     Route: 048
  23. CALCIUM [Concomitant]
     Indication: DRUG USE FOR UNKNOWN INDICATION
     Route: 048
  24. TOCOPHEROL CONCENTRATE CAP [Concomitant]
     Indication: DRUG USE FOR UNKNOWN INDICATION
     Route: 048
  25. LECITHIN [Concomitant]
     Indication: DRUG USE FOR UNKNOWN INDICATION
     Route: 048
  26. M.V.I. [Concomitant]
     Indication: DRUG USE FOR UNKNOWN INDICATION
     Route: 048
  27. MODU-CARE [Concomitant]
     Indication: DRUG USE FOR UNKNOWN INDICATION
     Route: 048
  28. TILACTASE [Concomitant]
     Indication: DRUG USE FOR UNKNOWN INDICATION
     Route: 048
  29. THAZIME [Concomitant]
     Indication: DRUG USE FOR UNKNOWN INDICATION
     Route: 048
  30. CALCIUM CARBONATE [Concomitant]
     Indication: DRUG USE FOR UNKNOWN INDICATION
     Route: 048
  31. CALCIUM ASCORBATE [Concomitant]
     Indication: DRUG USE FOR UNKNOWN INDICATION
     Route: 048
  32. GLUCOSAMINE [Concomitant]
     Indication: DRUG USE FOR UNKNOWN INDICATION
     Route: 048
  33. ERGOCALCIFEROL [Concomitant]
     Indication: DRUG USE FOR UNKNOWN INDICATION
     Route: 048

REACTIONS (2)
  - CARDIAC ARREST [None]
  - MYOCARDIAL INFARCTION [None]
